FAERS Safety Report 6839000-0 (Version None)
Quarter: 2010Q3

REPORT INFORMATION
  Report Type: 
  Country: None (occurrence: None)
  Receive Date: 20100713
  Receipt Date: 20090417
  Transmission Date: 20110219
  Serious: No
  Sender: FDA-Public Use
  Company Number: US-PFIZER INC-2007039932

PATIENT
  Sex: Female
  Weight: 54.4 kg

DRUGS (7)
  1. CHANTIX [Suspect]
     Indication: SMOKING CESSATION THERAPY
     Dosage: 0.5 MG, 2X/DAY
     Dates: start: 20070512
  2. RHINOCORT [Concomitant]
     Indication: EUSTACHIAN TUBE OBSTRUCTION
  3. LEXAPRO [Concomitant]
  4. SEROQUEL [Concomitant]
  5. KLONOPIN [Concomitant]
  6. MUCINEX [Concomitant]
  7. ALL OTHER THERAPEUTIC PRODUCTS [Concomitant]
     Indication: DEPRESSION
     Dosage: UNK

REACTIONS (9)
  - CHILLS [None]
  - DRUG INEFFECTIVE [None]
  - FEELING ABNORMAL [None]
  - INCORRECT DOSE ADMINISTERED [None]
  - INFLUENZA LIKE ILLNESS [None]
  - IRRITABILITY [None]
  - MALAISE [None]
  - NAUSEA [None]
  - TOBACCO WITHDRAWAL SYMPTOMS [None]
